FAERS Safety Report 7194375-0 (Version None)
Quarter: 2010Q4

REPORT INFORMATION
  Report Type: 
  Country: None (occurrence: None)
  Receive Date: 20101124
  Receipt Date: 20101020
  Transmission Date: 20110411
  Serious: No
  Sender: FDA-Public Use
  Company Number: 020708

PATIENT
  Sex: Female
  Weight: 57.6 kg

DRUGS (5)
  1. LACOSAMIDE [Suspect]
     Indication: EPILEPSY
     Dosage: (100 MG BID ORAL)
     Route: 048
     Dates: start: 20100801
  2. FOLIC ACID [Concomitant]
  3. DIAMOX /00016901/ [Concomitant]
  4. PRIMIDONE [Concomitant]
  5. VITAMIN B6 [Concomitant]

REACTIONS (3)
  - CONVULSION [None]
  - DEPRESSION [None]
  - NEPHROLITHIASIS [None]
